FAERS Safety Report 6903264-5 (Version None)
Quarter: 2010Q3

REPORT INFORMATION
  Report Type: 
  Country: None (occurrence: None)
  Receive Date: 20100803
  Receipt Date: 20080805
  Transmission Date: 20110219
  Serious: No
  Sender: FDA-Public Use
  Company Number: US-PFIZER INC-2008049497

PATIENT
  Sex: Male
  Weight: 84.1 kg

DRUGS (2)
  1. LYRICA [Suspect]
     Indication: NEURALGIA
     Dates: start: 20080320
  2. VICODIN [Concomitant]

REACTIONS (3)
  - AMNESIA [None]
  - DRUG INEFFECTIVE [None]
  - VISION BLURRED [None]
